FAERS Safety Report 4642029-4 (Version None)
Quarter: 2005Q2

REPORT INFORMATION
  Report Type: 
  Country: None (occurrence: None)
  Receive Date: 20050421
  Receipt Date: 20050401
  Transmission Date: 20051028
  Serious: Yes (Hospitalization, Disabling)
  Sender: FDA-Public Use
  Company Number: USA020313088

PATIENT
  Age: 59 Year
  Sex: Female
  Weight: 105 kg

DRUGS (10)
  1. PROZAC [Suspect]
     Indication: DEPRESSION
     Dosage: 20 MG DAY
  2. HUMULIN R [Suspect]
     Indication: DIABETES MELLITUS
  3. HUMULIN L [Suspect]
     Indication: DIABETES MELLITUS
  4. LASIX [Concomitant]
  5. COREG [Concomitant]
  6. ORUDIS [Concomitant]
  7. ZESTRIL [Concomitant]
  8. ALLOPURINOL [Concomitant]
  9. NIZORAL [Concomitant]
  10. LANTUS [Concomitant]

REACTIONS (11)
  - ANKLE FRACTURE [None]
  - ARTHRITIS [None]
  - BLOOD GLUCOSE DECREASED [None]
  - BLOOD GLUCOSE INCREASED [None]
  - CARDIAC FAILURE CONGESTIVE [None]
  - CONDITION AGGRAVATED [None]
  - DEPRESSION [None]
  - MALAISE [None]
  - NAUSEA [None]
  - OSTEOPOROSIS [None]
  - PHARMACEUTICAL PRODUCT COMPLAINT [None]
